FAERS Safety Report 6334874-4 (Version None)
Quarter: 2009Q3

REPORT INFORMATION
  Report Type: 
  Country: None (occurrence: None)
  Receive Date: 20090831
  Receipt Date: 20090825
  Transmission Date: 20100115
  Serious: Yes (Death)
  Sender: FDA-Public Use
  Company Number: US-AVENTIS-200917599US

PATIENT
  Sex: Male

DRUGS (2)
  1. LOVENOX [Suspect]
     Dates: start: 20090710, end: 20090720
  2. RADIATION [Concomitant]
     Dosage: DOSE: UNK
     Dates: end: 20090101

REACTIONS (5)
  - DRUG INEFFECTIVE [None]
  - INJECTION SITE HAEMATOMA [None]
  - PULMONARY EMBOLISM [None]
  - RESPIRATORY DISTRESS [None]
  - SPUTUM DISCOLOURED [None]
